FAERS Safety Report 7712806-1 (Version None)
Quarter: 2011Q3

REPORT INFORMATION
  Report Type: 
  Country: None (occurrence: None)
  Receive Date: 20110826
  Receipt Date: 20110819
  Transmission Date: 20111222
  Serious: Yes (Hospitalization)
  Sender: FDA-Public Use
  Company Number: FR-GLAXOSMITHKLINE-B0740952A

PATIENT
  Sex: Female

DRUGS (6)
  1. FUROSEMIDE [Suspect]
     Indication: PRODUCT USED FOR UNKNOWN INDICATION
     Dosage: 40MG PER DAY
     Route: 048
     Dates: end: 20100401
  2. PREVISCAN [Concomitant]
     Route: 048
  3. ALDACTONE [Suspect]
     Indication: PRODUCT USED FOR UNKNOWN INDICATION
     Dosage: 25MG PER DAY
     Route: 048
     Dates: end: 20100401
  4. PERINDOPRIL ERBUMINE [Suspect]
     Indication: PRODUCT USED FOR UNKNOWN INDICATION
     Dosage: 5MG PER DAY
     Route: 048
     Dates: end: 20100401
  5. PAROXETINE HCL [Suspect]
     Indication: PRODUCT USED FOR UNKNOWN INDICATION
     Dosage: 20MG TWICE PER DAY
     Route: 048
  6. TERCIAN [Concomitant]
     Dosage: 25MG PER DAY
     Route: 048

REACTIONS (10)
  - HEADACHE [None]
  - THROMBOCYTOPENIA [None]
  - HYPONATRAEMIA [None]
  - RENAL FAILURE [None]
  - FALL [None]
  - ABDOMINAL PAIN [None]
  - DEHYDRATION [None]
  - CONFUSIONAL STATE [None]
  - HYPERKALAEMIA [None]
  - VOMITING [None]
